FAERS Safety Report 13810698 (Version 1)
Quarter: 2017Q3

REPORT INFORMATION
  Report Type: Spontaneous
  Country: US (occurrence: US)
  Receive Date: 20170728
  Receipt Date: 20170728
  Transmission Date: 20171127
  Serious: No
  Sender: FDA-Public Use
  Company Number: US-AMGEN-USASP2017087168

PATIENT
  Age: 64 Year
  Sex: Male

DRUGS (6)
  1. LISINOPRIL. [Concomitant]
     Active Substance: LISINOPRIL
     Dosage: 20 MG, UNK
     Route: 048
  2. ROSUVASTATIN. [Concomitant]
     Active Substance: ROSUVASTATIN
     Dosage: 10 MG, UNK
     Route: 048
  3. REPATHA [Suspect]
     Active Substance: EVOLOCUMAB
     Indication: PRODUCT USED FOR UNKNOWN INDICATION
     Dosage: 420 MG, 3.5 ML QMO
     Route: 058
     Dates: start: 201703
  4. CHLORPROMAZIN [Concomitant]
     Dosage: 25 MG, UNK
     Route: 048
  5. NITROGLYCERIN. [Concomitant]
     Active Substance: NITROGLYCERIN
     Dosage: 0.4 MG, UNK
     Route: 060
  6. OMEPRAZOLE. [Concomitant]
     Active Substance: OMEPRAZOLE
     Dosage: 40 MG, UNK
     Route: 048

REACTIONS (1)
  - Pain in extremity [Not Recovered/Not Resolved]

NARRATIVE: CASE EVENT DATE: 20170515
